FAERS Safety Report 8667677 (Version 3)
Quarter: 2012Q4

REPORT INFORMATION
  Report Type: 
  Country: JP (occurrence: JP)
  Receive Date: 20120717
  Receipt Date: 20121003
  Transmission Date: 20130627
  Serious: Yes (Death, Other)
  Sender: FDA-Public Use
  Company Number: JP-009507513-1204USA03501

PATIENT

DRUGS (3)
  1. GLACTIV [Suspect]
     Indication: TYPE 2 DIABETES MELLITUS
     Dosage: 50 mg, qd
     Route: 048
     Dates: start: 20111004, end: 20111231
  2. MICARDIS [Concomitant]
     Dates: start: 20100721, end: 20111227
  3. ADALAT L [Concomitant]
     Dates: start: 20100721, end: 20111227

REACTIONS (3)
  - Gastric cancer [Fatal]
  - Sepsis [Fatal]
  - Malignant neoplasm progression [None]
